FAERS Safety Report 13496684 (Version 3)
Quarter: 2019Q4

REPORT INFORMATION
  Report Type: Spontaneous
  Country: US (occurrence: US)
  Receive Date: 20170428
  Receipt Date: 20191016
  Transmission Date: 20200122
  Serious: No
  Sender: FDA-Public Use
  Company Number: US-JAZZ-2017-US-003703

PATIENT
  Sex: Female

DRUGS (15)
  1. CYMBALTA [Concomitant]
     Active Substance: DULOXETINE HYDROCHLORIDE
  2. XYREM [Suspect]
     Active Substance: SODIUM OXYBATE
     Dosage: 4 G, BID
     Route: 048
     Dates: start: 201310
  3. NORTRIPTYLINE [Concomitant]
     Active Substance: NORTRIPTYLINE
  4. NUVIGIL [Concomitant]
     Active Substance: ARMODAFINIL
  5. PREVACID [Concomitant]
     Active Substance: LANSOPRAZOLE
  6. ZONEGRAN [Concomitant]
     Active Substance: ZONISAMIDE
  7. IBUPROFEN. [Concomitant]
     Active Substance: IBUPROFEN
  8. RESTASIS [Concomitant]
     Active Substance: CYCLOSPORINE
  9. XYREM [Suspect]
     Active Substance: SODIUM OXYBATE
     Indication: CATAPLEXY
     Dosage: DOSE ADJUSTMENT
     Route: 048
     Dates: start: 2011, end: 2013
  10. AMBIEN [Concomitant]
     Active Substance: ZOLPIDEM TARTRATE
  11. INDOMETACIN [Concomitant]
     Active Substance: INDOMETHACIN
  12. XYREM [Suspect]
     Active Substance: SODIUM OXYBATE
     Indication: NARCOLEPSY
     Dosage: 2.25 G, BID
     Route: 048
     Dates: start: 201111, end: 2011
  13. ABILIFY [Concomitant]
     Active Substance: ARIPIPRAZOLE
  14. PANTOPRAZOLE SODIUM. [Concomitant]
     Active Substance: PANTOPRAZOLE SODIUM
  15. LYRICA [Concomitant]
     Active Substance: PREGABALIN

REACTIONS (2)
  - Sinusitis [Recovered/Resolved]
  - Laryngitis [Not Recovered/Not Resolved]
